FAERS Safety Report 8713196 (Version 2)
Quarter: 2012Q4

REPORT INFORMATION
  Report Type: 
  Country: US (occurrence: US)
  Receive Date: 20120808
  Receipt Date: 20121016
  Transmission Date: 20130627
  Serious: No
  Sender: FDA-Public Use
  Company Number: US-PFIZER INC-2012190753

PATIENT
  Age: 80 Year
  Sex: Female
  Weight: 73.47 kg

DRUGS (6)
  1. DETROL LA [Suspect]
     Indication: HYPERTONIC BLADDER
     Dosage: 4 mg, 1x/day
     Route: 048
     Dates: end: 2012
  2. DETROL LA [Suspect]
     Dosage: UNK
  3. OXYBUTYNIN [Suspect]
     Indication: HYPERTONIC BLADDER
     Dosage: 5 mg, 2x/day
     Dates: start: 2012, end: 2012
  4. SANCTURA XR [Suspect]
     Indication: HYPERTONIC BLADDER
     Dosage: 60 mg, daily
     Route: 048
     Dates: start: 2012
  5. CITRACAL [Concomitant]
     Indication: MINERAL SUPPLEMENTATION
     Dosage: UNK
  6. VITAMIN D [Concomitant]
     Dosage: UNK

REACTIONS (4)
  - Drug ineffective [Unknown]
  - Nocturia [Unknown]
  - Hypertonic bladder [Unknown]
  - Feeling jittery [Unknown]
